FAERS Safety Report 8494079 (Version 2)
Quarter: 2013Q1

REPORT INFORMATION
  Report Type: Spontaneous
  Country: US (occurrence: US)
  Receive Date: 20120404
  Receipt Date: 20130312
  Transmission Date: 20140127
  Serious: Yes (Other)
  Sender: FDA-Public Use
  Company Number: US-ASTRAZENECA-2010SE61227

PATIENT
  Age: 81 Year
  Sex: Female

DRUGS (1)
  1. NEXIUM [Suspect]
     Dosage: GENERIC
     Route: 048

REACTIONS (7)
  - Haemorrhage [Unknown]
  - Gastric ulcer [Unknown]
  - Nasopharyngitis [Unknown]
  - Adverse event [Unknown]
  - Influenza [Unknown]
  - Drug dose omission [Unknown]
  - Drug ineffective [Unknown]
